FAERS Safety Report 9887840 (Version 1)
Quarter: 2013Q4

REPORT INFORMATION
  Report Type: Spontaneous
  Country: US (occurrence: None)
  Receive Date: 20131223
  Receipt Date: 20131223
  Transmission Date: 20140711
  Serious: No
  Sender: FDA-Public Use
  Company Number: 220063LEO

PATIENT
  Age: 56 Year
  Sex: Female

DRUGS (1)
  1. PICATO (0.05%, GEL) [Suspect]
     Indication: ACTINIC KERATOSIS
     Dates: start: 20130102

REACTIONS (9)
  - Blister [None]
  - Urticaria [None]
  - Erythema [None]
  - Skin swelling [None]
  - Skin exfoliation [None]
  - Accidental exposure to product [None]
  - Drug administered at inappropriate site [None]
  - Inappropriate schedule of drug administration [None]
  - Drug administration error [None]
